FAERS Safety Report 6065826-X (Version None)
Quarter: 2009Q1

REPORT INFORMATION
  Report Type: 
  Country: None (occurrence: None)
  Receive Date: 20090205
  Receipt Date: 20090129
  Transmission Date: 20090719
  Serious: Yes (Hospitalization)
  Sender: FDA-Public Use
  Company Number: FR-JNJFOC-20090107268

PATIENT
  Age: 70 Year
  Sex: Female

DRUGS (7)
  1. LEVOFLOXACIN [Suspect]
     Indication: DRUG USE FOR UNKNOWN INDICATION
     Route: 048
  2. ARIMIDEX [Concomitant]
     Indication: BREAST CANCER
     Route: 048
  3. CORTANCYL [Concomitant]
     Indication: SJOGREN'S SYNDROME
     Route: 048
  4. PLAQUENIL [Concomitant]
     Indication: SJOGREN'S SYNDROME
     Route: 048
  5. OSTRAM [Concomitant]
     Dosage: DOSE:1 U
     Route: 048
  6. STABLON [Concomitant]
     Indication: DEPRESSION
     Route: 048
  7. SERESTA [Concomitant]
     Indication: ANXIETY
     Route: 048

REACTIONS (4)
  - AGITATION [None]
  - CONFUSIONAL STATE [None]
  - DELUSION [None]
  - DISORIENTATION [None]
